FAERS Safety Report 12316187 (Version 1)
Quarter: 2016Q2

REPORT INFORMATION
  Report Type: Spontaneous
  Country: CA (occurrence: CA)
  Receive Date: 20160428
  Receipt Date: 20160428
  Transmission Date: 20160815
  Serious: Yes (Life-Threatening, Hospitalization, Other)
  Sender: FDA-Public Use
  Company Number: CA-009507513-1604CAN017204

PATIENT
  Age: 17 Year
  Sex: Female

DRUGS (1)
  1. LINESSA 21 [Suspect]
     Active Substance: DESOGESTREL\ETHINYL ESTRADIOL
     Indication: CONTRACEPTION
     Dosage: 1 DOSAGE FORMS
     Route: 048

REACTIONS (4)
  - Intracranial pressure increased [Unknown]
  - Seizure [Unknown]
  - VIth nerve paralysis [Unknown]
  - Cerebral thrombosis [Unknown]
